FAERS Safety Report 17819886 (Version 1)
Quarter: 2020Q2

REPORT INFORMATION
  Report Type: Spontaneous
  Country: JP (occurrence: JP)
  Receive Date: 20200524
  Receipt Date: 20200524
  Transmission Date: 20200714
  Serious: Yes (Hospitalization)
  Sender: FDA-Public Use
  Company Number: NVSJ2020JP005159

PATIENT

DRUGS (1)
  1. EQUMET [Suspect]
     Active Substance: METFORMIN HYDROCHLORIDE\VILDAGLIPTIN
     Indication: PRODUCT USED FOR UNKNOWN INDICATION
     Dosage: METFORMIN 250MG, VILDAGLIPTIN 50MG
     Route: 048
     Dates: start: 20200311, end: 20200323

REACTIONS (2)
  - Product prescribing error [Unknown]
  - Pneumonia [Unknown]
